FAERS Safety Report 13361065 (Version 2)
Quarter: 2017Q1

REPORT INFORMATION
  Report Type: Spontaneous
  Country: US (occurrence: US)
  Receive Date: 20170322
  Receipt Date: 20170327
  Transmission Date: 20170429
  Serious: Yes (Hospitalization, Other)
  Sender: FDA-Public Use
  Company Number: US-BAUSCH-BL-2017-007281

PATIENT
  Age: 67 Year
  Sex: Female

DRUGS (2)
  1. VICTOZA [Suspect]
     Active Substance: LIRAGLUTIDE
     Indication: PRODUCT USED FOR UNKNOWN INDICATION
     Route: 065
  2. XIFAXAN [Suspect]
     Active Substance: RIFAXIMIN
     Indication: PRODUCT USED FOR UNKNOWN INDICATION
     Route: 065

REACTIONS (10)
  - Hernia [Unknown]
  - Ulcer [Unknown]
  - Diabetes mellitus [Unknown]
  - Adverse event [Unknown]
  - Gastrooesophageal reflux disease [Unknown]
  - Hepatic encephalopathy [Unknown]
  - Hospitalisation [Unknown]
  - Condition aggravated [Unknown]
  - Blood glucose abnormal [Unknown]
  - Psoriatic arthropathy [Unknown]

NARRATIVE: CASE EVENT DATE: 201607
